FAERS Safety Report 23919355 (Version 1)
Quarter: 2024Q2

REPORT INFORMATION
  Report Type: Spontaneous
  Country: US (occurrence: None)
  Receive Date: 20240529
  Receipt Date: 20240529
  Transmission Date: 20240716
  Serious: Yes (Hospitalization)
  Sender: FDA-Public Use
  Company Number: None

PATIENT
  Age: 71 Year
  Sex: Male

DRUGS (2)
  1. CEFEPIME HYDROCHLORIDE [Suspect]
     Active Substance: CEFEPIME HYDROCHLORIDE
     Dates: start: 20240301, end: 20240418
  2. DALBAVANCIN [Suspect]
     Active Substance: DALBAVANCIN

REACTIONS (3)
  - Acute kidney injury [None]
  - Acute kidney injury [None]
  - Renal cyst [None]

NARRATIVE: CASE EVENT DATE: 20240425
